FAERS Safety Report 10286617 (Version 1)
Quarter: 2014Q3

REPORT INFORMATION
  Report Type: Spontaneous
  Country: GB (occurrence: GB)
  Receive Date: 20140709
  Receipt Date: 20140709
  Transmission Date: 20150326
  Serious: Yes (Other)
  Sender: FDA-Public Use
  Company Number: GB-TEVA-492137ISR

PATIENT
  Age: 71 Year
  Sex: Female

DRUGS (5)
  1. COCODAMOL [Concomitant]
     Active Substance: ACETAMINOPHEN\CODEINE PHOSPHATE
     Indication: PRODUCT USED FOR UNKNOWN INDICATION
     Route: 048
  2. DORZOLAMIDE [Suspect]
     Active Substance: DORZOLAMIDE
     Indication: RETINITIS PIGMENTOSA
     Route: 047
     Dates: start: 20130528, end: 20140604
  3. DORZOLAMIDE [Suspect]
     Active Substance: DORZOLAMIDE
     Indication: MACULAR OEDEMA
     Dosage: 3 DOSAGE FORMS DAILY;
     Route: 047
     Dates: start: 20130528, end: 20140604
  4. SIMVASTATIN. [Concomitant]
     Active Substance: SIMVASTATIN
     Indication: BLOOD CHOLESTEROL INCREASED
  5. CALCICHEW [Concomitant]
     Active Substance: CALCIUM CARBONATE
     Indication: PRODUCT USED FOR UNKNOWN INDICATION
     Route: 048

REACTIONS (5)
  - Malaise [Recovered/Resolved]
  - Pain [Recovered/Resolved]
  - Palpitations [Recovered/Resolved]
  - Hypoaesthesia [Recovered/Resolved]
  - Headache [Recovered/Resolved]
